FAERS Safety Report 10005084 (Version 1)
Quarter: 2014Q1

REPORT INFORMATION
  Report Type: Spontaneous
  Country: DE (occurrence: DE)
  Receive Date: 20140312
  Receipt Date: 20140312
  Transmission Date: 20141002
  Serious: Yes (Hospitalization)
  Sender: FDA-Public Use
  Company Number: GXKR2014DE001183

PATIENT
  Sex: 0

DRUGS (4)
  1. VALPROIC ACID [Suspect]
     Indication: EPILEPSY
     Dosage: 90 MG, BID
     Route: 048
     Dates: start: 20120618
  2. KEPPRA [Suspect]
     Indication: EPILEPSY
     Dosage: 300 MG, BID
     Route: 048
     Dates: start: 20111025
  3. L-THYROXINE//LEVOTHYROXINE [Concomitant]
     Indication: HYPOTHYROIDISM
     Dosage: 12.5 UG, QD
     Route: 048
     Dates: start: 20111028
  4. D-FLUORETTEN [Concomitant]
     Indication: PROPHYLAXIS
     Dosage: 500 IU, QD
     Dates: start: 20111018

REACTIONS (1)
  - Diet refusal [Recovering/Resolving]
